FAERS Safety Report 4385413-9 (Version None)
Quarter: 2004Q2

REPORT INFORMATION
  Report Type: 
  Country: None (occurrence: None)
  Receive Date: 20040622
  Receipt Date: 20040607
  Transmission Date: 20050107
  Serious: Yes (Hospitalization, Other)
  Sender: FDA-Public Use
  Company Number: 04-212-0768

PATIENT
  Sex: Female
  Weight: 64 kg

DRUGS (1)
  1. DAUNORUBICIN HCL [Suspect]
     Indication: ACUTE MYELOID LEUKAEMIA
     Dosage: 45 MG/M2 IV DAYS 1,3
     Dates: start: 20040504

REACTIONS (7)
  - DIARRHOEA [None]
  - DYSURIA [None]
  - FATIGUE [None]
  - HYPERGLYCAEMIA [None]
  - HYPOTENSION [None]
  - INFECTION [None]
  - PYREXIA [None]
